FAERS Safety Report 23060932 (Version 4)
Quarter: 2024Q1

REPORT INFORMATION
  Report Type: Report from Study
  Country: US (occurrence: US)
  Receive Date: 20231012
  Receipt Date: 20240208
  Transmission Date: 20240409
  Serious: Yes (Hospitalization, Other)
  Sender: FDA-Public Use
  Company Number: US-ABBVIE-5442413

PATIENT
  Sex: Male

DRUGS (2)
  1. HUMIRA [Suspect]
     Active Substance: ADALIMUMAB
     Indication: Colitis ulcerative
     Dosage: FORM STRENGTH: 40 MILLIGRAM?CITRATE FREE?LAST ADMIN DATE- AUG 2023
     Route: 058
     Dates: start: 20230802
  2. HUMIRA [Suspect]
     Active Substance: ADALIMUMAB
     Dosage: FORM STRENGTH: 40MG?CF
     Route: 058
     Dates: start: 20230828, end: 202311

REACTIONS (11)
  - Vascular occlusion [Recovering/Resolving]
  - Lethargy [Not Recovered/Not Resolved]
  - Sepsis [Not Recovered/Not Resolved]
  - Anaemia [Not Recovered/Not Resolved]
  - Poor peripheral circulation [Not Recovered/Not Resolved]
  - Wound complication [Not Recovered/Not Resolved]
  - Decreased appetite [Not Recovered/Not Resolved]
  - Osteomyelitis [Recovered/Resolved]
  - Asthenia [Not Recovered/Not Resolved]
  - Hypophagia [Not Recovered/Not Resolved]
  - Impaired healing [Not Recovered/Not Resolved]

NARRATIVE: CASE EVENT DATE: 20230101
